FAERS Safety Report 13590726 (Version 1)
Quarter: 2017Q2

REPORT INFORMATION
  Report Type: Spontaneous
  Country: US (occurrence: US)
  Receive Date: 20170527
  Receipt Date: 20170527
  Transmission Date: 20170830
  Serious: No
  Sender: FDA-Public Use
  Company Number: None

PATIENT
  Age: 59 Year
  Sex: Male

DRUGS (1)
  1. TACROLIMUS CAP 0.5MG KREMERS URBAN [Suspect]
     Active Substance: TACROLIMUS

REACTIONS (2)
  - Hypotension [None]
  - Fatigue [None]

NARRATIVE: CASE EVENT DATE: 20170527
